FAERS Safety Report 24977897 (Version 1)
Quarter: 2025Q1

REPORT INFORMATION
  Report Type: Spontaneous
  Country: US (occurrence: US)
  Receive Date: 20250217
  Receipt Date: 20250217
  Transmission Date: 20250409
  Serious: No
  Sender: PFIZER
  Company Number: US-PFIZER INC-PV202500017832

PATIENT
  Age: 92 Year
  Sex: Female

DRUGS (4)
  1. EXEMESTANE [Suspect]
     Active Substance: EXEMESTANE
     Indication: Breast cancer
  2. EXEMESTANE [Suspect]
     Active Substance: EXEMESTANE
     Indication: Wound necrosis
  3. IBRANCE [Suspect]
     Active Substance: PALBOCICLIB
     Indication: Breast cancer
     Route: 048
  4. IBRANCE [Suspect]
     Active Substance: PALBOCICLIB
     Indication: Wound necrosis

REACTIONS (1)
  - Dyspnoea [Recovering/Resolving]
